FAERS Safety Report 8134631-2 (Version None)
Quarter: 2012Q1

REPORT INFORMATION
  Report Type: 
  Country: None (occurrence: None)
  Receive Date: 20120214
  Receipt Date: 20120209
  Transmission Date: 20120608
  Serious: Yes (Death, Hospitalization)
  Sender: FDA-Public Use
  Company Number: US-ELI_LILLY_AND_COMPANY-US201202003137

PATIENT
  Sex: Male

DRUGS (1)
  1. HUMALOG [Suspect]
     Indication: HYPERGLYCAEMIA
     Dosage: UNK UNK, PRN
     Dates: end: 20120108

REACTIONS (3)
  - PULMONARY FISTULA [None]
  - IMPAIRED HEALING [None]
  - EMPHYSEMA [None]
